FAERS Safety Report 7957293-3 (Version None)
Quarter: 2011Q4

REPORT INFORMATION
  Report Type: 
  Country: None (occurrence: None)
  Receive Date: 20111201
  Receipt Date: 20111114
  Transmission Date: 20120403
  Serious: Yes (Other)
  Sender: FDA-Public Use
  Company Number: 1000025691

PATIENT
  Age: 61 Year
  Sex: Female

DRUGS (10)
  1. LIVALO (PITAVASTATIN CALCIUM) (PITAVASTATIN CALCIUM) [Concomitant]
  2. MAGMITT (MAGNESIUM OXIDE) (MAGNESIUM OXIDE) [Concomitant]
  3. BLOPRESS (CANDESARTAN CILEXETIL) (CANDESARTAN CILEXETIL) [Concomitant]
  4. AMLODIPINE [Concomitant]
  5. MEMANTINE HYDROCHLORIDE [Suspect]
     Indication: DEMENTIA ALZHEIMER'S TYPE
     Dosage: 5 MG (5 MG, 1 IN 1 D); 10 MG (10 MG, 1 IN 1 D); 15 MG (15 MG, 1 IN 1 D)
     Dates: start: 20110609, end: 20110623
  6. MEMANTINE HYDROCHLORIDE [Suspect]
     Indication: DEMENTIA ALZHEIMER'S TYPE
     Dosage: 5 MG (5 MG, 1 IN 1 D); 10 MG (10 MG, 1 IN 1 D); 15 MG (15 MG, 1 IN 1 D)
     Dates: start: 20110701, end: 20110704
  7. MEMANTINE HYDROCHLORIDE [Suspect]
     Indication: DEMENTIA ALZHEIMER'S TYPE
     Dosage: 5 MG (5 MG, 1 IN 1 D); 10 MG (10 MG, 1 IN 1 D); 15 MG (15 MG, 1 IN 1 D)
     Dates: start: 20110624, end: 20110630
  8. REMINYL (GALANTAMINE HYDROBROMIDE) (GALANTAMINE HYDROBROMIDE) [Concomitant]
  9. MEMANTINE HYDROCHLORIDE [Suspect]
     Indication: DEMENTIA ALZHEIMER'S TYPE
     Dosage: 20 MG (20 MG, 1 IN 1 D)
     Dates: start: 20110705, end: 20110802
  10. GORIN-SAN (AKEBIA STEM, ALISMA RHIZOME, GARDENIA FRUIT, JAPANESE ANGEL [Concomitant]

REACTIONS (7)
  - BLOOD POTASSIUM DECREASED [None]
  - HYPOPHAGIA [None]
  - ALANINE AMINOTRANSFERASE INCREASED [None]
  - BLOOD PRESSURE INCREASED [None]
  - SOMNOLENCE [None]
  - DEFICIENCY OF BILE SECRETION [None]
  - THINKING ABNORMAL [None]
